FAERS Safety Report 5805472-3 (Version None)
Quarter: 2008Q3

REPORT INFORMATION
  Report Type: 
  Country: None (occurrence: None)
  Receive Date: 20080710
  Receipt Date: 20080701
  Transmission Date: 20090109
  Serious: Yes (Death)
  Sender: FDA-Public Use
  Company Number: US-WYE-H04425708

PATIENT
  Age: 85 Year
  Sex: Male
  Weight: 81.72 kg

DRUGS (4)
  1. PRISTIQ [Suspect]
     Indication: MAJOR DEPRESSION
     Route: 048
     Dates: start: 20080530
  2. BUSPAR [Concomitant]
     Indication: ANXIETY
     Route: 048
     Dates: start: 20080525
  3. SINEQUAN [Concomitant]
     Indication: DEPRESSION
     Route: 048
     Dates: start: 20080517
  4. L-METHYLFOLATE [Concomitant]
     Dosage: 1 DAILY
     Dates: start: 20080602

REACTIONS (2)
  - ASPHYXIA [None]
  - COMPLETED SUICIDE [None]
